FAERS Safety Report 6125819-0 (Version None)
Quarter: 2009Q1

REPORT INFORMATION
  Report Type: 
  Country: None (occurrence: None)
  Receive Date: 20090320
  Receipt Date: 20090311
  Transmission Date: 20090719
  Serious: Yes (Other)
  Sender: FDA-Public Use
  Company Number: PHEH2009US02606

PATIENT
  Sex: Female

DRUGS (8)
  1. RECLAST [Suspect]
     Indication: OSTEOPOROSIS
     Dosage: UNK
     Dates: start: 20081110
  2. DEXEDRINE [Suspect]
     Indication: ATTENTION DEFICIT/HYPERACTIVITY DISORDER
  3. ETANERCEPT [Concomitant]
  4. METHOTREXATE [Concomitant]
  5. ADVAIR HFA [Concomitant]
  6. PREVACID [Concomitant]
  7. RHINOCORT (BECLOMETASONE DIPROPIONATE) [Concomitant]
  8. CALCIUM WITH VITAMIN D [Concomitant]

REACTIONS (5)
  - BONE PAIN [None]
  - DRUG ADMINISTRATION ERROR [None]
  - INFUSION SITE PAIN [None]
  - MUSCLE SPASMS [None]
  - REMOVAL OF FOREIGN BODY [None]
